FAERS Safety Report 6238160-2 (Version None)
Quarter: 2009Q2

REPORT INFORMATION
  Report Type: 
  Country: None (occurrence: None)
  Receive Date: 20090622
  Receipt Date: 20060908
  Transmission Date: 20091009
  Serious: Yes (Hospitalization, Other)
  Sender: FDA-Public Use
  Company Number: NL-JNJFOC-20060901425

PATIENT
  Age: 81 Year
  Sex: Male

DRUGS (7)
  1. FENTANYL [Suspect]
     Indication: BONE PAIN
     Route: 062
  2. RISEDRONATE SODIUM [Concomitant]
  3. RANITIDINE [Concomitant]
  4. ASPIRIN [Concomitant]
  5. DICLOFENAC [Concomitant]
     Indication: BONE PAIN
  6. MISOPROSTOL [Concomitant]
     Indication: BONE PAIN
  7. GOSERELIN [Concomitant]
     Indication: PROSTATE CANCER

REACTIONS (2)
  - INTENTIONAL DRUG MISUSE [None]
  - NARCOTIC INTOXICATION [None]
